FAERS Safety Report 20982375 (Version 4)
Quarter: 2023Q1

REPORT INFORMATION
  Report Type: Spontaneous
  Country: US (occurrence: US)
  Receive Date: 20220620
  Receipt Date: 20230330
  Transmission Date: 20230418
  Serious: Yes (Death, Hospitalization)
  Sender: FDA-Public Use
  Company Number: US-PFIZER INC-PV202200005409

PATIENT
  Age: 82 Year
  Sex: Male
  Weight: 72.575 kg

DRUGS (1)
  1. VYNDAMAX [Suspect]
     Active Substance: TAFAMIDIS
     Indication: Cardiac disorder
     Dosage: 61 MG, 1X/DAY
     Dates: start: 202205

REACTIONS (7)
  - Death [Fatal]
  - Malaise [Unknown]
  - Feeling abnormal [Unknown]
  - Confusional state [Unknown]
  - Eating disorder [Unknown]
  - Grief reaction [Unknown]
  - Speech disorder [Unknown]

NARRATIVE: CASE EVENT DATE: 20221214
